FAERS Safety Report 8400300-4 (Version None)
Quarter: 2012Q2

REPORT INFORMATION
  Report Type: 
  Country: None (occurrence: None)
  Receive Date: 20120531
  Receipt Date: 20110608
  Transmission Date: 20120825
  Serious: No
  Sender: FDA-Public Use
  Company Number: US-NOVEN-11US002590

PATIENT
  Sex: Male
  Weight: 58.957 kg

DRUGS (4)
  1. WELLBUTRIN SR [Concomitant]
     Indication: ANXIETY
  2. DAYTRANA [Suspect]
     Indication: ATTENTION DEFICIT/HYPERACTIVITY DISORDER
     Dosage: 15 MG, QD
     Route: 062
     Dates: start: 20110525
  3. TRAZODONE HCL [Concomitant]
     Indication: INSOMNIA
     Dosage: 50 MG, PRN
     Route: 048
     Dates: start: 20110525
  4. WELLBUTRIN SR [Concomitant]
     Indication: DEPRESSION
     Dosage: 300 MG, QD
     Route: 048
     Dates: start: 20110525

REACTIONS (2)
  - PAIN IN JAW [None]
  - OFF LABEL USE [None]
